FAERS Safety Report 10268959 (Version 2)
Quarter: 2014Q4

REPORT INFORMATION
  Report Type: Spontaneous
  Country: IT (occurrence: IT)
  Receive Date: 20140630
  Receipt Date: 20141104
  Transmission Date: 20150528
  Serious: Yes (Hospitalization, Other)
  Sender: FDA-Public Use
  Company Number: IT-ELI_LILLY_AND_COMPANY-IT201406006672

PATIENT
  Age: 34 Year
  Sex: Male

DRUGS (7)
  1. HALDOL [Suspect]
     Active Substance: HALOPERIDOL
     Indication: DEPRESSION
     Dosage: 5 DF, DROPS
     Dates: start: 20140528, end: 20140603
  2. HALDOL [Suspect]
     Active Substance: HALOPERIDOL
     Indication: ANXIETY
  3. TEGRETOL [Suspect]
     Active Substance: CARBAMAZEPINE
     Indication: DEPRESSION
     Dosage: 400 MG, QD
     Route: 048
     Dates: start: 20140523, end: 20140603
  4. CYMBALTA [Suspect]
     Active Substance: DULOXETINE HYDROCHLORIDE
     Indication: DEPRESSION
     Dosage: 60 MG, QD
     Route: 048
     Dates: start: 20140523, end: 20140603
  5. EUTIROX [Concomitant]
     Active Substance: LEVOTHYROXINE SODIUM
     Indication: HYPOTHYROIDISM
     Dosage: 125 UG, UNKNOWN
     Route: 048
     Dates: start: 2006
  6. CYMBALTA [Suspect]
     Active Substance: DULOXETINE HYDROCHLORIDE
     Indication: ANXIETY
  7. TEGRETOL [Suspect]
     Active Substance: CARBAMAZEPINE
     Indication: ANXIETY

REACTIONS (3)
  - Blister [Recovering/Resolving]
  - Haemorrhage [Recovering/Resolving]
  - Genital haemorrhage [Unknown]

NARRATIVE: CASE EVENT DATE: 20140603
